FAERS Safety Report 5199081-X (Version None)
Quarter: 2007Q1

REPORT INFORMATION
  Report Type: 
  Country: None (occurrence: None)
  Receive Date: 20070104
  Receipt Date: 20061222
  Transmission Date: 20070707
  Serious: Yes (Other)
  Sender: FDA-Public Use
  Company Number: US-SHR-US-2006-030533

PATIENT
  Age: 42 Year
  Sex: Female

DRUGS (1)
  1. BETASERON [Suspect]
     Indication: RELAPSING-REMITTING MULTIPLE SCLEROSIS
     Dosage: 8 MIU, EVERY 2D
     Route: 058
     Dates: start: 19940623

REACTIONS (13)
  - BLOOD CHOLESTEROL INCREASED [None]
  - CUTANEOUS LUPUS ERYTHEMATOSUS [None]
  - DERMAL CYST [None]
  - FOLLICULITIS [None]
  - LOW DENSITY LIPOPROTEIN INCREASED [None]
  - MILIA [None]
  - OPTIC NERVE DISORDER [None]
  - PHOTODERMATOSIS [None]
  - SECRETION DISCHARGE [None]
  - SKIN NODULE [None]
  - SOLAR ELASTOSIS [None]
  - TELANGIECTASIA [None]
  - VISUAL ACUITY REDUCED [None]
